FAERS Safety Report 5711754-6 (Version None)
Quarter: 2008Q2

REPORT INFORMATION
  Report Type: 
  Country: None (occurrence: None)
  Receive Date: 20080421
  Receipt Date: 20080409
  Transmission Date: 20081010
  Serious: Yes (Other)
  Sender: FDA-Public Use
  Company Number: AU-PFIZER INC-2008018668

PATIENT
  Sex: Male

DRUGS (2)
  1. CHAMPIX [Suspect]
     Dates: start: 20080111, end: 20080101
  2. HALCION [Concomitant]
     Route: 048

REACTIONS (4)
  - ASTHENIA [None]
  - DEPRESSION [None]
  - DYSPNOEA [None]
  - SUICIDAL IDEATION [None]
